FAERS Safety Report 12384636 (Version 1)
Quarter: 2016Q2

REPORT INFORMATION
  Report Type: Spontaneous
  Country: US (occurrence: None)
  Receive Date: 20160518
  Receipt Date: 20160518
  Transmission Date: 20160815
  Serious: Yes (Disabling, Other)
  Sender: FDA-Public Use
  Company Number: None

PATIENT
  Age: 62 Year
  Sex: Female
  Weight: 68.04 kg

DRUGS (16)
  1. SULFASALAZINE. [Concomitant]
     Active Substance: SULFASALAZINE
  2. ATORVASTATIN [Concomitant]
     Active Substance: ATORVASTATIN
  3. KLONOPIN [Concomitant]
     Active Substance: CLONAZEPAM
  4. EPIPEN [Concomitant]
     Active Substance: EPINEPHRINE
  5. FOLIC ACID. [Concomitant]
     Active Substance: FOLIC ACID
  6. PROTONIX [Concomitant]
     Active Substance: PANTOPRAZOLE SODIUM
  7. DILANTIN [Concomitant]
     Active Substance: PHENYTOIN
  8. LEVOTHYROXINE. [Concomitant]
     Active Substance: LEVOTHYROXINE
  9. VIMPAT [Suspect]
     Active Substance: LACOSAMIDE
     Indication: SEIZURE
     Dosage: ONE A DAY 2015?(2) A DAY BEFORE 3/03/16?1/2 DOSE 4/22/16
     Route: 048
  10. DOCUSATE SODIUM. [Concomitant]
     Active Substance: DOCUSATE SODIUM
  11. ZANAFLEX [Concomitant]
     Active Substance: TIZANIDINE HYDROCHLORIDE
  12. LISINOPRIL. [Concomitant]
     Active Substance: LISINOPRIL
  13. PROMETHAZINE [Concomitant]
     Active Substance: PROMETHAZINE\PROMETHAZINE HYDROCHLORIDE
  14. NORCO [Concomitant]
     Active Substance: ACETAMINOPHEN\HYDROCODONE BITARTRATE
  15. FENTANYL. [Concomitant]
     Active Substance: FENTANYL
  16. NITRO [Concomitant]
     Active Substance: NITROGLYCERIN

REACTIONS (8)
  - Dizziness [None]
  - Constipation [None]
  - Hyperphagia [None]
  - Gastrointestinal pain [None]
  - Abdominal pain upper [None]
  - Nausea [None]
  - Feeling abnormal [None]
  - Retching [None]

NARRATIVE: CASE EVENT DATE: 20160201
